FAERS Safety Report 24191499 (Version 2)
Quarter: 2024Q3

REPORT INFORMATION
  Report Type: Spontaneous
  Country: TW (occurrence: TW)
  Receive Date: 20240808
  Receipt Date: 20240904
  Transmission Date: 20241016
  Serious: Yes (Other)
  Sender: MERCK
  Company Number: TW-009507513-2408TWN000880

PATIENT
  Age: 59 Year
  Sex: Female

DRUGS (3)
  1. KEYTRUDA [Suspect]
     Active Substance: PEMBROLIZUMAB
     Indication: Lung adenocarcinoma
     Dosage: STRENGTH: 100MG/4ML/VIAL, 2 MG/KG, 100 MG
     Route: 041
  2. DOCETAXEL [Suspect]
     Active Substance: DOCETAXEL\DOCETAXEL ANHYDROUS
     Indication: Lung adenocarcinoma
  3. CARBOPLATIN [Suspect]
     Active Substance: CARBOPLATIN
     Indication: Lung adenocarcinoma

REACTIONS (7)
  - Lung lobectomy [Unknown]
  - Lymphadenectomy [Unknown]
  - Tumour necrosis [Unknown]
  - Fibrosis [Unknown]
  - Lymphocytic infiltration [Unknown]
  - Therapy partial responder [Unknown]
  - Inappropriate schedule of product administration [Unknown]
